FAERS Safety Report 16905471 (Version 1)
Quarter: 2019Q4

REPORT INFORMATION
  Report Type: Spontaneous
  Country: US (occurrence: US)
  Receive Date: 20191010
  Receipt Date: 20191010
  Transmission Date: 20200122
  Serious: Yes (Hospitalization)
  Sender: FDA-Public Use
  Company Number: US-JNJFOC-20191005436

PATIENT
  Age: 33 Year
  Sex: Female
  Weight: 112.22 kg

DRUGS (4)
  1. INVOKANA [Suspect]
     Active Substance: CANAGLIFLOZIN
     Indication: TYPE 2 DIABETES MELLITUS
     Route: 048
     Dates: start: 20150217, end: 201508
  2. INVOKANA [Suspect]
     Active Substance: CANAGLIFLOZIN
     Route: 048
     Dates: start: 201508, end: 201509
  3. INVOKANA [Suspect]
     Active Substance: CANAGLIFLOZIN
     Route: 048
     Dates: start: 201608
  4. INVOKANA [Suspect]
     Active Substance: CANAGLIFLOZIN
     Route: 048
     Dates: start: 201509, end: 201604

REACTIONS (8)
  - Osteomyelitis [Unknown]
  - Wound dehiscence [Unknown]
  - Diabetic foot infection [Unknown]
  - Sepsis [Unknown]
  - Gangrene [Unknown]
  - Foot amputation [Unknown]
  - Polydipsia [Unknown]
  - Polyuria [Unknown]

NARRATIVE: CASE EVENT DATE: 201502
